FAERS Safety Report 13525387 (Version 1)
Quarter: 2017Q2

REPORT INFORMATION
  Report Type: Spontaneous
  Country: US (occurrence: US)
  Receive Date: 20170508
  Receipt Date: 20170508
  Transmission Date: 20170830
  Serious: No
  Sender: FDA-Public Use
  Company Number: US-ROCHE-1124811

PATIENT
  Sex: Female

DRUGS (5)
  1. ABRAXANE [Concomitant]
     Active Substance: PACLITAXEL
     Route: 065
     Dates: start: 200605, end: 200612
  2. TAMOXIFEN [Concomitant]
     Active Substance: TAMOXIFEN
  3. AVASTIN [Suspect]
     Active Substance: BEVACIZUMAB
     Indication: BREAST CANCER FEMALE
     Route: 065
  4. TAXOTERE [Concomitant]
     Active Substance: DOCETAXEL
  5. ARIMIDEX [Concomitant]
     Active Substance: ANASTROZOLE

REACTIONS (1)
  - Disease progression [Unknown]
